FAERS Safety Report 17713028 (Version 3)
Quarter: 2020Q4

REPORT INFORMATION
  Report Type: Spontaneous
  Country: GR (occurrence: GR)
  Receive Date: 20200427
  Receipt Date: 20201204
  Transmission Date: 20210113
  Serious: Yes (Hospitalization)
  Sender: FDA-Public Use
  Company Number: GR-CHIESI USA, INC.-GR-2020CHI000215

PATIENT

DRUGS (14)
  1. SYRINGE GRADUATED [Suspect]
     Active Substance: DEVICE
     Indication: THROMBOLYSIS
     Dosage: 10U FOLLOWED BY ADDITIONAL 10U AFTER 30 MINUTES
     Route: 040
  2. ENOXAPARIN [Suspect]
     Active Substance: ENOXAPARIN
     Indication: ANTICOAGULANT THERAPY
     Dosage: 30 MG, 1
     Route: 040
  3. STERILE WATER [Suspect]
     Active Substance: WATER
     Indication: THROMBOLYSIS
     Dosage: 10U FOLLOWED BY ADDITIONAL 10U AFTER 30 MINUTES
     Route: 040
  4. ASPIRIN                            /00002701/ [Suspect]
     Active Substance: ASPIRIN
     Dosage: 100 MG, 1
     Route: 065
  5. TICAGRELOR. [Suspect]
     Active Substance: TICAGRELOR
     Indication: ANTIPLATELET THERAPY
     Dosage: 90 MG, BID
     Route: 065
  6. BISOPROLOL [Concomitant]
     Active Substance: BISOPROLOL
     Indication: PRODUCT USED FOR UNKNOWN INDICATION
     Dosage: 5 MG, QD
     Route: 065
  7. ENOXAPARIN [Suspect]
     Active Substance: ENOXAPARIN
     Dosage: 70 MG, 1
     Route: 058
  8. FUROSEMIDE. [Concomitant]
     Active Substance: FUROSEMIDE
     Indication: PRODUCT USED FOR UNKNOWN INDICATION
     Dosage: 20 MG, QD
     Route: 065
  9. RETEPLASE [Suspect]
     Active Substance: RETEPLASE
     Indication: THROMBOLYSIS
     Dosage: 10U FOLLOWED BY ADDITIONAL 10U AFTER 30 MINUTES
     Route: 040
  10. PANTOPRAZOLE [Concomitant]
     Active Substance: PANTOPRAZOLE
     Indication: PRODUCT USED FOR UNKNOWN INDICATION
     Dosage: 20 MG, QD
     Route: 065
  11. ATORVASTATIN [Concomitant]
     Active Substance: ATORVASTATIN
     Indication: PRODUCT USED FOR UNKNOWN INDICATION
     Dosage: 40 MG, QD
     Route: 065
  12. RECONSTITUTION SPIKE [Suspect]
     Active Substance: DEVICE
     Indication: THROMBOLYSIS
     Dosage: 10U FOLLOWED BY ADDITIONAL 10U AFTER 30 MINUTES
     Route: 040
  13. CLOPIDOGREL [Suspect]
     Active Substance: CLOPIDOGREL BISULFATE
     Indication: ANTIPLATELET THERAPY
     Dosage: 300 MG, 1
     Route: 065
  14. ASPIRIN                            /00002701/ [Suspect]
     Active Substance: ASPIRIN
     Indication: ANTIPLATELET THERAPY
     Dosage: 250 MG, 1
     Route: 065

REACTIONS (1)
  - Spinal epidural haematoma [Recovered/Resolved]
